FAERS Safety Report 4492555-6 (Version None)
Quarter: 2004Q4

REPORT INFORMATION
  Report Type: 
  Country: None (occurrence: None)
  Receive Date: 20041102
  Receipt Date: 20041102
  Transmission Date: 20050328
  Serious: Yes (Other)
  Sender: FDA-Public Use
  Company Number: None

PATIENT
  Sex: Male
  Weight: 97.5234 kg

DRUGS (2)
  1. ACTIMMUNE [Suspect]
     Indication: INTERSTITIAL LUNG DISEASE
     Dosage: 100 MG 3X /WK
     Dates: start: 20020901, end: 20030101
  2. ACTIMMUNE [Suspect]
     Indication: INTERSTITIAL LUNG DISEASE
     Dosage: 100 MG 3X /WK
     Dates: start: 20030401

REACTIONS (4)
  - ARTHRITIS [None]
  - MANTLE CELL LYMPHOMA [None]
  - MYALGIA [None]
  - PAIN IN JAW [None]
